FAERS Safety Report 20016819 (Version 1)
Quarter: 2021Q4

REPORT INFORMATION
  Report Type: Spontaneous
  Country: US (occurrence: None)
  Receive Date: 20211105
  Receipt Date: 20211105
  Transmission Date: 20220303
  Serious: Yes (Hospitalization)
  Sender: FDA-Public Use
  Company Number: None

PATIENT
  Sex: Male
  Weight: 77.4 kg

DRUGS (7)
  1. BOSULIF [Suspect]
     Active Substance: BOSUTINIB MONOHYDRATE
     Indication: Chronic myeloid leukaemia
     Dosage: FREQUENCY : DAILY;?
     Route: 048
     Dates: start: 20190220
  2. ATROPINE\DIPHENOXYLATE [Concomitant]
     Active Substance: ATROPINE\DIPHENOXYLATE
  3. FERROUS SULFATE [Concomitant]
     Active Substance: FERROUS SULFATE
  4. ProBio Max [Concomitant]
  5. SIMVASTATIN [Concomitant]
     Active Substance: SIMVASTATIN
  6. URSODIOL [Concomitant]
     Active Substance: URSODIOL
  7. WARFARIN [Concomitant]
     Active Substance: WARFARIN

REACTIONS (2)
  - Cardiac operation [None]
  - Heart valve replacement [None]
